FAERS Safety Report 16008238 (Version 1)
Quarter: 2019Q1

REPORT INFORMATION
  Report Type: Spontaneous
  Country: US (occurrence: US)
  Receive Date: 20190226
  Receipt Date: 20190226
  Transmission Date: 20190418
  Serious: Yes (Hospitalization, Other)
  Sender: FDA-Public Use
  Company Number: US-CASPER PHARMA LLC-2019CAS000070

PATIENT
  Age: 49 Year
  Sex: Female

DRUGS (3)
  1. BISMUTH, METRONIDAZOLE, TETRACYCLIN [Suspect]
     Active Substance: BISMUTH SUBSALICYLATE\METRONIDAZOLE\TETRACYCLINE HYDROCHLORIDE
     Dosage: 500 UNK, ONE DOSE
     Route: 042
  2. IBUPROFEN. [Concomitant]
     Active Substance: IBUPROFEN
     Indication: MYALGIA
     Route: 065
  3. BISMUTH, METRONIDAZOLE, TETRACYCLIN [Suspect]
     Active Substance: BISMUTH SUBSALICYLATE\METRONIDAZOLE\TETRACYCLINE HYDROCHLORIDE
     Indication: BACTERIAL VAGINOSIS
     Dosage: 500 MILLIGRAM, TID, 4 TO 5 TIMES PER WEEK
     Route: 048

REACTIONS (2)
  - Product use in unapproved indication [Unknown]
  - Aplastic anaemia [Recovering/Resolving]
